FAERS Safety Report 20529584 (Version 2)
Quarter: 2022Q1

REPORT INFORMATION
  Report Type: Spontaneous
  Country: US (occurrence: US)
  Receive Date: 20220301
  Receipt Date: 20220311
  Transmission Date: 20220423
  Serious: Yes (Other)
  Sender: FDA-Public Use
  Company Number: US-MLMSERVICE-20220210-3368531-1

PATIENT
  Age: 7 Decade
  Sex: Female

DRUGS (5)
  1. CINACALCET HYDROCHLORIDE [Interacting]
     Active Substance: CINACALCET HYDROCHLORIDE
     Indication: Blood calcium increased
     Dosage: 30 MILLIGRAM, ONCE A DAY
     Route: 048
  2. CINACALCET HYDROCHLORIDE [Interacting]
     Active Substance: CINACALCET HYDROCHLORIDE
     Indication: Hyperparathyroidism
     Dosage: 90 MILLIGRAM, EVERY WEEK (30 MG 3 TIMES IN A WEEK)
     Route: 048
  3. CLOZAPINE [Interacting]
     Active Substance: CLOZAPINE
     Indication: Schizophrenia
     Dosage: 150 MILLIGRAM, ONCE A DAY (400 MG DAILY (150 MG IN THE MORNING AD 250 MG AT BEDTIME).
     Route: 065
  4. CLOZAPINE [Interacting]
     Active Substance: CLOZAPINE
     Dosage: 250 MILLIGRAM, ONCE A DAY (400 MG DAILY (150 MG IN THE MORNING AD 250 MG AT BEDTIME).)
     Route: 065
  5. CLOZAPINE [Interacting]
     Active Substance: CLOZAPINE
     Dosage: 125 MILLIGRAM, ONCE A DAY
     Route: 065

REACTIONS (2)
  - Drug interaction [Recovered/Resolved]
  - Torticollis [Recovered/Resolved]
